FAERS Safety Report 10357316 (Version 1)
Quarter: 2014Q3

REPORT INFORMATION
  Report Type: Spontaneous
  Country: US (occurrence: US)
  Receive Date: 20140801
  Receipt Date: 20140801
  Transmission Date: 20150326
  Serious: No
  Sender: FDA-Public Use
  Company Number: US-009507513-1407USA006462

PATIENT
  Age: 51 Year
  Sex: Male
  Weight: 78.7 kg

DRUGS (2)
  1. REBETOL [Suspect]
     Active Substance: RIBAVIRIN
     Indication: HEPATITIS C
     Dosage: 600 MG, BID (TAKE TWO CAPSULES BY MOUTH TWICE A DAY FOR INFECTION TAKE WITH FOOD)
     Route: 048
     Dates: start: 20121006
  2. VICTRELIS [Suspect]
     Active Substance: BOCEPREVIR
     Indication: HEPATITIS C
     Dosage: 800 MG, TID (TAKE FOUR CAPSULES BY MOUTH EVERY EIGHT HOURS)
     Route: 048
     Dates: start: 20121101

REACTIONS (1)
  - Anaemia [Unknown]

NARRATIVE: CASE EVENT DATE: 20121128
